FAERS Safety Report 13531215 (Version 1)
Quarter: 2017Q2

REPORT INFORMATION
  Report Type: Spontaneous
  Country: US (occurrence: US)
  Receive Date: 20170510
  Receipt Date: 20170510
  Transmission Date: 20170830
  Serious: Yes (Other)
  Sender: FDA-Public Use
  Company Number: None

PATIENT
  Age: 80 Year
  Sex: Female
  Weight: 59.02 kg

DRUGS (11)
  1. MELATONIN [Concomitant]
     Active Substance: MELATONIN
  2. ONDANSETRON [Concomitant]
     Active Substance: ONDANSETRON
  3. VIT/MINERAL [Concomitant]
  4. RESTASIS [Concomitant]
     Active Substance: CYCLOSPORINE
  5. ACTIGALL [Concomitant]
     Active Substance: URSODIOL
  6. OMEPRAZOLE. [Concomitant]
     Active Substance: OMEPRAZOLE
  7. CAL/MAG [Concomitant]
  8. ARMOUR THYROID [Concomitant]
     Active Substance: THYROID, PORCINE
  9. VITAMIN C [Concomitant]
     Active Substance: ASCORBIC ACID
  10. WELLBUTRIN [Concomitant]
     Active Substance: BUPROPION HYDROCHLORIDE
  11. METHYLPREDNISOLONE 4MG [Suspect]
     Active Substance: METHYLPREDNISOLONE
     Indication: RESPIRATORY DISORDER
     Dosage: DAY 1 - 6 AS PRESCRIBED?DAY 2 - 5 AS PRESCRIBED?DAY 3 - 4 AS PRESCRIBED?DAY 4 - 3 AS PRESCRIBED?DAY 5 - 2 AS PRESCRIBED?DAY 6 - 1 AS PRESCRIBED
     Route: 048
     Dates: start: 20170327, end: 20170401

REACTIONS (4)
  - Pain [None]
  - Inflammation [None]
  - Eating disorder [None]
  - Nausea [None]

NARRATIVE: CASE EVENT DATE: 20170401
